FAERS Safety Report 23571613 (Version 1)
Quarter: 2024Q1

REPORT INFORMATION
  Report Type: Spontaneous
  Country: GB (occurrence: GB)
  Receive Date: 20240227
  Receipt Date: 20240227
  Transmission Date: 20240410
  Serious: Yes (Other)
  Sender: FDA-Public Use
  Company Number: GB-TEVA-VS-3157375

PATIENT
  Age: 67 Year
  Sex: Female
  Weight: 60 kg

DRUGS (5)
  1. OLANZAPINE [Suspect]
     Active Substance: OLANZAPINE
     Indication: Psychiatric symptom
     Dosage: 2.5 MG, QD
     Route: 048
     Dates: start: 202102, end: 202104
  2. RISPERIDONE [Suspect]
     Active Substance: RISPERIDONE
     Indication: Psychiatric symptom
     Dosage: 1 MG
     Route: 048
     Dates: start: 202104, end: 202301
  3. MIRTAZAPINE [Concomitant]
     Active Substance: MIRTAZAPINE
     Indication: Major depression
     Dosage: 30 MG, QD
     Route: 048
     Dates: end: 202304
  4. TETRABENAZINE [Concomitant]
     Active Substance: TETRABENAZINE
     Dosage: 25 MG, QD
     Route: 048
     Dates: start: 202306
  5. TETRABENAZINE [Concomitant]
     Active Substance: TETRABENAZINE
     Indication: Tardive dyskinesia
     Dosage: TIME INTERVAL: 0.33333333 DAYS
     Route: 048
     Dates: start: 202301, end: 202306

REACTIONS (1)
  - Tardive dyskinesia [Recovering/Resolving]

NARRATIVE: CASE EVENT DATE: 20221001
